FAERS Safety Report 5688166-7 (Version None)
Quarter: 2008Q1

REPORT INFORMATION
  Report Type: 
  Country: None (occurrence: None)
  Receive Date: 20080327
  Receipt Date: 20080314
  Transmission Date: 20080703
  Serious: Yes (Hospitalization)
  Sender: FDA-Public Use
  Company Number: 2008VX000734

PATIENT
  Age: 49 Year
  Sex: Male

DRUGS (3)
  1. ANCOTIL (FLUCYTOSINE) [Suspect]
     Dosage: 2 MG;TID;IV
     Route: 042
     Dates: start: 20071205, end: 20071212
  2. AMBISOME [Suspect]
     Indication: CRYPTOCOCCOSIS
     Dosage: 180 MG;QD;IV
     Route: 042
     Dates: start: 20071205, end: 20071212
  3. AMPHOTERICIN B (AMPHOTERICIN B) (50 MG) [Suspect]
     Dosage: 2 DF;IV
     Route: 042
     Dates: start: 20071213

REACTIONS (9)
  - ARACHNOIDITIS [None]
  - ASPARTATE AMINOTRANSFERASE INCREASED [None]
  - BLOOD PRESSURE INCREASED [None]
  - GAMMA-GLUTAMYLTRANSFERASE INCREASED [None]
  - NEUROLOGICAL SYMPTOM [None]
  - OXYGEN SATURATION DECREASED [None]
  - RENAL FAILURE ACUTE [None]
  - SENSORY DISTURBANCE [None]
  - VASCULITIS CEREBRAL [None]
